FAERS Safety Report 6769280-1 (Version None)
Quarter: 2010Q2

REPORT INFORMATION
  Report Type: 
  Country: None (occurrence: None)
  Receive Date: 20100615
  Receipt Date: 20100607
  Transmission Date: 20101027
  Serious: Yes (Other)
  Sender: FDA-Public Use
  Company Number: US-JNJFOC-20100602636

PATIENT
  Age: 8 Year
  Sex: Female
  Weight: 31.75 kg

DRUGS (5)
  1. CONCERTA [Suspect]
     Indication: ATTENTION DEFICIT/HYPERACTIVITY DISORDER
     Route: 048
  2. CONCERTA [Suspect]
     Dosage: 18MG TWO TABLETS
     Route: 048
  3. CONCERTA [Suspect]
     Route: 048
  4. VYVANSE [Suspect]
     Indication: DRUG USE FOR UNKNOWN INDICATION
     Route: 065
  5. MELATONIN [Suspect]
     Indication: SLEEP DISORDER
     Dosage: AT BEDTIME
     Route: 048

REACTIONS (7)
  - AGITATION [None]
  - HALLUCINATION [None]
  - INITIAL INSOMNIA [None]
  - IRRITABILITY [None]
  - NASOPHARYNGITIS [None]
  - PARANOIA [None]
  - SUICIDAL IDEATION [None]
